FAERS Safety Report 4846267-7 (Version None)
Quarter: 2005Q4

REPORT INFORMATION
  Report Type: 
  Country: None (occurrence: None)
  Receive Date: 20051206
  Receipt Date: 20051130
  Transmission Date: 20060501
  Serious: Yes (Hospitalization)
  Sender: FDA-Public Use
  Company Number: ES-SANOFI-SYNTHELABO-F01200502622

PATIENT
  Sex: Male

DRUGS (3)
  1. OXALIPLATIN [Suspect]
     Indication: RECTAL CANCER
     Route: 041
     Dates: start: 20051114, end: 20051114
  2. CAPECITABINE [Suspect]
     Dosage: 825 MG/M2 TWICE PER DAY FOR 5 DAYS PER WEEK
     Route: 048
     Dates: start: 20051114, end: 20051117
  3. RADIOTHERAPY [Concomitant]
     Dosage: TOTAL DOSE OF 45 GY IN FRACTIONS OF 1.8 GY PER SESSION, 5 SESSIONS PER WEEK, FOR 5 WEEKS

REACTIONS (1)
  - ISCHAEMIC STROKE [None]
